FAERS Safety Report 11515942 (Version 1)
Quarter: 2015Q3

REPORT INFORMATION
  Report Type: Spontaneous
  Country: AU (occurrence: AU)
  Receive Date: 20150916
  Receipt Date: 20150916
  Transmission Date: 20151125
  Serious: Yes (Other)
  Sender: FDA-Public Use
  Company Number: AU-AMGEN-AUSSP2015093292

PATIENT
  Age: 80 Year
  Sex: Female

DRUGS (3)
  1. PROLIA [Suspect]
     Active Substance: DENOSUMAB
     Indication: OSTEOPOROSIS
     Dosage: 60 MG, Q6MO
     Route: 065
     Dates: start: 20140310
  2. GABAPENTIN. [Concomitant]
     Active Substance: GABAPENTIN
  3. SOMAC [Concomitant]
     Active Substance: PANTOPRAZOLE SODIUM

REACTIONS (5)
  - Sensitivity of teeth [Unknown]
  - Bruxism [Unknown]
  - Tooth abscess [Unknown]
  - Dry mouth [Unknown]
  - Tooth disorder [Unknown]

NARRATIVE: CASE EVENT DATE: 201508
